FAERS Safety Report 21356645 (Version 2)
Quarter: 2022Q3

REPORT INFORMATION
  Report Type: Spontaneous
  Country: CO (occurrence: CO)
  Receive Date: 20220920
  Receipt Date: 20220927
  Transmission Date: 20221027
  Serious: Yes (Other)
  Sender: FDA-Public Use
  Company Number: CO-BIOMARINAP-CO-2022-145643

PATIENT

DRUGS (3)
  1. NAGLAZYME [Suspect]
     Active Substance: GALSULFASE
     Indication: Mucopolysaccharidosis VI
     Dosage: 25 MILLIGRAM, QW
     Route: 042
     Dates: start: 2007
  2. NAGLAZYME [Suspect]
     Active Substance: GALSULFASE
     Dosage: UNK
     Route: 042
     Dates: start: 1999
  3. LEVOTHYROXINE [Concomitant]
     Active Substance: LEVOTHYROXINE
     Indication: Product used for unknown indication
     Dosage: 100 MICROGRAM, QD
     Route: 048

REACTIONS (9)
  - Spinal cord compression [Unknown]
  - Myelopathy [Unknown]
  - Foramen magnum stenosis [Unknown]
  - Encephalocele [Unknown]
  - Brain stem syndrome [Unknown]
  - Blood thyroid stimulating hormone increased [Unknown]
  - Kidney small [Unknown]
  - Oxygen saturation decreased [Unknown]
  - Umbilical hernia [Unknown]

NARRATIVE: CASE EVENT DATE: 20180224
